FAERS Safety Report 6252951-3 (Version None)
Quarter: 2009Q3

REPORT INFORMATION
  Report Type: 
  Country: None (occurrence: None)
  Receive Date: 20090701
  Receipt Date: 20090630
  Transmission Date: 20100115
  Serious: Yes (Life-Threatening, Hospitalization)
  Sender: FDA-Public Use
  Company Number: B0538894A

PATIENT
  Sex: Female
  Weight: 43 kg

DRUGS (9)
  1. FLOLAN [Suspect]
     Indication: PULMONARY ARTERIAL HYPERTENSION
     Route: 042
     Dates: start: 20030724
  2. TAKEPRON [Suspect]
     Indication: DRUG USE FOR UNKNOWN INDICATION
     Dosage: 15MG PER DAY
     Route: 048
  3. FUROSEMIDE INTENSOL [Concomitant]
     Dosage: 40MG PER DAY
     Route: 048
  4. SPIRONOLACTONE [Concomitant]
     Dosage: 25MG PER DAY
     Route: 048
  5. LAC B [Concomitant]
     Dosage: 3G PER DAY
     Route: 048
  6. URALYT URATO [Concomitant]
     Dosage: 3G PER DAY
     Route: 048
  7. URINORM [Concomitant]
     Dosage: 18MG PER DAY
     Route: 048
  8. LOPEMIN [Concomitant]
     Dosage: 1MG PER DAY
     Route: 048
  9. ENSURE [Concomitant]
     Route: 048

REACTIONS (9)
  - ALANINE AMINOTRANSFERASE INCREASED [None]
  - ASPARTATE AMINOTRANSFERASE INCREASED [None]
  - CARDIAC FAILURE [None]
  - HEPATIC CONGESTION [None]
  - HEPATIC FUNCTION ABNORMAL [None]
  - HYPERTHYROIDISM [None]
  - IDIOPATHIC THROMBOCYTOPENIC PURPURA [None]
  - LIVER DISORDER [None]
  - THYROIDITIS [None]
